FAERS Safety Report 21028112 (Version 2)
Quarter: 2024Q2

REPORT INFORMATION
  Report Type: Spontaneous
  Country: SE (occurrence: SE)
  Receive Date: 20220630
  Receipt Date: 20240529
  Transmission Date: 20240715
  Serious: Yes (Disabling)
  Sender: FDA-Public Use
  Company Number: None

PATIENT
  Age: 28 Year
  Sex: Female
  Weight: 54 kg

DRUGS (1)
  1. VENLAFAXINE [Suspect]
     Active Substance: VENLAFAXINE HYDROCHLORIDE
     Indication: Anxiety
     Dosage: DOSAGE TEXT: 150 MG 1 TABLET PER DAY, PROLONGED-RELEASE HARD CAPSULE, DURATION : 5 YEARS, VENLAFA...
     Route: 048
     Dates: start: 20160701, end: 20210901

REACTIONS (6)
  - Suicidal ideation [Not Recovered/Not Resolved]
  - Tremor [Recovered/Resolved]
  - Sleep disorder [Recovered/Resolved]
  - Disturbance in attention [Not Recovered/Not Resolved]
  - Tooth erosion [Not Recovered/Not Resolved]
  - Memory impairment [Not Recovered/Not Resolved]

NARRATIVE: CASE EVENT DATE: 20160730
